FAERS Safety Report 19891211 (Version 1)
Quarter: 2021Q3

REPORT INFORMATION
  Report Type: Spontaneous
  Country: AU (occurrence: AU)
  Receive Date: 20210928
  Receipt Date: 20210928
  Transmission Date: 20211014
  Serious: Yes (Hospitalization, Other)
  Sender: FDA-Public Use
  Company Number: AU-PFIZER INC-202101268240

PATIENT
  Age: 56 Year
  Sex: Male

DRUGS (23)
  1. HALOPERIDOL. [Suspect]
     Active Substance: HALOPERIDOL
     Dosage: 5 MG, 4X/DAY
  2. PRAMIPEXOLE. [Suspect]
     Active Substance: PRAMIPEXOLE
     Dosage: 0.125 UNK
  3. FLUVOXAMINE [Suspect]
     Active Substance: FLUVOXAMINE
     Dosage: 50 MG, 1X/DAY
  4. CLONAZEPAM. [Suspect]
     Active Substance: CLONAZEPAM
     Dosage: 0.5 MG, 4X/DAY
  5. PERINDOPRIL [Suspect]
     Active Substance: PERINDOPRIL
     Dosage: 5 MG, 1X/DAY
  6. CLOZARIL [Suspect]
     Active Substance: CLOZAPINE
     Indication: SCHIZOPHRENIA
     Dosage: 500 MG, 1X/DAY
     Route: 048
     Dates: start: 20060104
  7. OLODATEROL + TIOTROPIUM [Suspect]
     Active Substance: OLODATEROL HYDROCHLORIDE\TIOTROPIUM BROMIDE MONOHYDRATE
     Dosage: 2 PUFF, 1X/DAY
  8. DIAZEPAM. [Suspect]
     Active Substance: DIAZEPAM
     Dosage: 5 MG, 2X/DAY
  9. ACETYLSALICYLIC ACID [Suspect]
     Active Substance: ASPIRIN
     Dosage: 100 MG, 1X/DAY (MORNING)
  10. OLANZAPINE. [Suspect]
     Active Substance: OLANZAPINE
     Dosage: 10 MG, 2X/DAY
  11. ATORVASTATIN CALCIUM. [Suspect]
     Active Substance: ATORVASTATIN CALCIUM
     Dosage: 80 MG, 1X/DAY (NIGHT)
  12. AMLODIPINE BESILATE [Suspect]
     Active Substance: AMLODIPINE BESYLATE
     Dosage: 10 MG, 1X/DAY (MORNING)
  13. METFORMIN HCL [Suspect]
     Active Substance: METFORMIN HYDROCHLORIDE
     Dosage: 1 G, 1X/DAY
  14. THIAMINE HCL [Suspect]
     Active Substance: THIAMINE HYDROCHLORIDE
     Dosage: 100 MG, 1X/DAY
  15. FERROUS SULFATE. [Suspect]
     Active Substance: FERROUS SULFATE
     Dosage: 325 MG, 1X/DAY
  16. COLECALCIFEROL [Suspect]
     Active Substance: CHOLECALCIFEROL
     Dosage: 125 UG, 1X/DAY
  17. BREXPIPRAZOLE [Suspect]
     Active Substance: BREXPIPRAZOLE
     Indication: PSYCHOTIC SYMPTOM
     Dosage: UNK
  18. ASCORBIC ACID. [Suspect]
     Active Substance: ASCORBIC ACID
     Dosage: 500 MG, 1X/DAY
  19. QUETIAPINE FUMARATE. [Suspect]
     Active Substance: QUETIAPINE FUMARATE
     Dosage: 300 MG, 1X/DAY
  20. CLOZARIL [Suspect]
     Active Substance: CLOZAPINE
     Dosage: 350 MG
     Route: 048
     Dates: start: 20210116
  21. PRAMIPEXOLE. [Suspect]
     Active Substance: PRAMIPEXOLE
     Dosage: 0.5 MG, 3X/DAY
  22. SALBUTAMOL SULFATE [Suspect]
     Active Substance: ALBUTEROL SULFATE
     Dosage: 100 UG, 2X/DAY
  23. CLOZARIL [Suspect]
     Active Substance: CLOZAPINE
     Dosage: 475 MG
     Route: 048
     Dates: start: 20210116

REACTIONS (17)
  - Coma scale abnormal [Unknown]
  - Cardiogenic shock [Unknown]
  - Bradycardia [Unknown]
  - Hypothermia [Unknown]
  - Pericardial effusion [Unknown]
  - Mental impairment [Unknown]
  - Hypotension [Unknown]
  - Cardiac dysfunction [Unknown]
  - Respiratory failure [Unknown]
  - Overdose [Unknown]
  - Septic shock [Unknown]
  - Drug effect less than expected [Unknown]
  - Brain injury [Unknown]
  - Cardiomyopathy [Unknown]
  - Hypoxia [Unknown]
  - Encephalitis toxic [Unknown]
  - Delirium [Unknown]

NARRATIVE: CASE EVENT DATE: 20200831
